FAERS Safety Report 8565587-6 (Version None)
Quarter: 2012Q3

REPORT INFORMATION
  Report Type: 
  Country: None (occurrence: None)
  Receive Date: 20120803
  Receipt Date: 20120731
  Transmission Date: 20120928
  Serious: Yes (Disabling, Other)
  Sender: FDA-Public Use
  Company Number: US-PFIZER INC-2010079660

PATIENT
  Sex: Male

DRUGS (2)
  1. CHANTIX [Suspect]
     Indication: SMOKING CESSATION THERAPY
     Dosage: 1 MG, UNK
     Dates: start: 20080101, end: 20090101
  2. CLARITIN [Concomitant]
     Indication: HYPERSENSITIVITY
     Dosage: UNK
     Dates: start: 20030101

REACTIONS (14)
  - INSOMNIA [None]
  - DEPRESSION [None]
  - SUICIDAL BEHAVIOUR [None]
  - AGGRESSION [None]
  - ANXIETY [None]
  - FEELING ABNORMAL [None]
  - HOSTILITY [None]
  - MENTAL DISORDER [None]
  - DECREASED INTEREST [None]
  - VISION BLURRED [None]
  - BALANCE DISORDER [None]
  - COGNITIVE DISORDER [None]
  - SUICIDAL IDEATION [None]
  - DISTURBANCE IN ATTENTION [None]
